FAERS Safety Report 7681607-5 (Version None)
Quarter: 2011Q3

REPORT INFORMATION
  Report Type: 
  Country: None (occurrence: None)
  Receive Date: 20110812
  Receipt Date: 20110804
  Transmission Date: 20111222
  Serious: Yes (Other)
  Sender: FDA-Public Use
  Company Number: PHEH2011US01136

PATIENT
  Sex: Female

DRUGS (1)
  1. GILENYA [Suspect]

REACTIONS (6)
  - FATIGUE [None]
  - MUSCLE FATIGUE [None]
  - FIBROADENOMA OF BREAST [None]
  - URINARY TRACT INFECTION [None]
  - BACK PAIN [None]
  - GAIT DISTURBANCE [None]
